FAERS Safety Report 12379345 (Version 1)
Quarter: 2016Q2

REPORT INFORMATION
  Report Type: Spontaneous
  Country: US (occurrence: US)
  Receive Date: 20160517
  Receipt Date: 20160517
  Transmission Date: 20160815
  Serious: No
  Sender: FDA-Public Use
  Company Number: US-RELYPSA-RLY2016000397

PATIENT

DRUGS (12)
  1. VITAMIN D                          /00107901/ [Concomitant]
     Active Substance: ERGOCALCIFEROL
  2. MAGNESIUM OXIDE. [Concomitant]
     Active Substance: MAGNESIUM OXIDE
  3. ASPIRIN                            /00002701/ [Concomitant]
     Active Substance: ASPIRIN
  4. LANTUS [Concomitant]
     Active Substance: INSULIN GLARGINE
  5. CLONAZEPAM. [Concomitant]
     Active Substance: CLONAZEPAM
  6. VELTASSA [Suspect]
     Active Substance: PATIROMER
     Indication: HYPERKALAEMIA
     Dosage: 8.4 G, QD
     Route: 048
     Dates: start: 20160330
  7. EFFIENT [Concomitant]
     Active Substance: PRASUGREL HYDROCHLORIDE
  8. MIRTAZAPINE. [Concomitant]
     Active Substance: MIRTAZAPINE
  9. HUMALOG MIX50/50 [Concomitant]
     Active Substance: INSULIN LISPRO
  10. CARVEDILOL. [Concomitant]
     Active Substance: CARVEDILOL
  11. ALIROCUMAB [Concomitant]
     Active Substance: ALIROCUMAB
  12. CO Q 10                            /00517201/ [Concomitant]

REACTIONS (7)
  - Skin exfoliation [Unknown]
  - Feeling abnormal [Unknown]
  - Asthenia [Unknown]
  - Pruritus [Unknown]
  - Dysphonia [Unknown]
  - Muscle spasms [Unknown]
  - Chest discomfort [Unknown]
